FAERS Safety Report 7011692-5 (Version None)
Quarter: 2010Q3

REPORT INFORMATION
  Report Type: 
  Country: None (occurrence: None)
  Receive Date: 20100923
  Receipt Date: 20090420
  Transmission Date: 20110219
  Serious: No
  Sender: FDA-Public Use
  Company Number: US-WYE-H09040909

PATIENT
  Sex: Female

DRUGS (5)
  1. PREMARIN [Suspect]
     Indication: HORMONE REPLACEMENT THERAPY
     Dosage: 0.9 MG (FREQUENCY UNSPECIFIED)
     Route: 048
     Dates: start: 19740101, end: 20090101
  2. PREMARIN [Suspect]
     Dosage: 0.625 MG (FREQUENCY UNSPECIFIED)
     Route: 048
     Dates: start: 20090101
  3. LOPRESSOR [Concomitant]
  4. SYNTHROID [Concomitant]
  5. METOPROLOL TARTRATE [Concomitant]

REACTIONS (2)
  - DRUG INEFFECTIVE [None]
  - SKIN DISCOLOURATION [None]
